FAERS Safety Report 21143167 (Version 1)
Quarter: 2022Q3

REPORT INFORMATION
  Report Type: Spontaneous
  Country: DE (occurrence: DE)
  Receive Date: 20220728
  Receipt Date: 20220728
  Transmission Date: 20221026
  Serious: Yes (Hospitalization)
  Sender: FDA-Public Use
  Company Number: DE-NOVARTISPH-NVSC2022DE168126

PATIENT
  Sex: Female

DRUGS (5)
  1. MOMETASONE FUROATE [Suspect]
     Active Substance: MOMETASONE FUROATE
     Indication: Nasal congestion
     Dosage: 1 DF, Q8H
     Route: 065
     Dates: start: 2022, end: 202206
  2. MOMETASONE FUROATE [Suspect]
     Active Substance: MOMETASONE FUROATE
     Dosage: 4 DF, QD
     Route: 065
     Dates: start: 2022, end: 2022
  3. MOMETASONE FUROATE [Suspect]
     Active Substance: MOMETASONE FUROATE
     Dosage: 2 DF, Q12H
     Route: 065
     Dates: start: 2022, end: 2022
  4. LEVOCETIRIZINE [Suspect]
     Active Substance: LEVOCETIRIZINE
     Indication: Seasonal allergy
     Dosage: 5 MG, QD
     Route: 065
  5. DEXPANTHENOL\XYLOMETAZOLINE HYDROCHLORIDE [Concomitant]
     Active Substance: DEXPANTHENOL\XYLOMETAZOLINE HYDROCHLORIDE
     Indication: Product used for unknown indication
     Dosage: JUN-2022 / UNKNOWN
     Route: 065

REACTIONS (9)
  - Nasal congestion [Unknown]
  - Inappropriate schedule of product administration [Unknown]
  - Sleep disorder [Not Recovered/Not Resolved]
  - Mucosal dryness [Unknown]
  - Nasal obstruction [Unknown]
  - Therapeutic product effect incomplete [Unknown]
  - Pyrexia [Unknown]
  - Mucosal haemorrhage [Unknown]
  - Mucosal inflammation [Unknown]
